FAERS Safety Report 23783715 (Version 2)
Quarter: 2024Q2

REPORT INFORMATION
  Report Type: Report from Study
  Country: US (occurrence: US)
  Receive Date: 20240425
  Receipt Date: 20240515
  Transmission Date: 20240716
  Serious: Yes (Other)
  Sender: FDA-Public Use
  Company Number: US-ASTELLAS-2024EU003934

PATIENT
  Age: 64 Year
  Sex: Male

DRUGS (1)
  1. ENZALUTAMIDE [Suspect]
     Active Substance: ENZALUTAMIDE
     Indication: Prostate cancer
     Route: 048
     Dates: start: 202404

REACTIONS (3)
  - Fatigue [Unknown]
  - Diarrhoea [Unknown]
  - Oedema [Unknown]

NARRATIVE: CASE EVENT DATE: 20240401
